FAERS Safety Report 21899308 (Version 1)
Quarter: 2023Q1

REPORT INFORMATION
  Report Type: Spontaneous
  Country: HK (occurrence: HK)
  Receive Date: 20230123
  Receipt Date: 20230123
  Transmission Date: 20230418
  Serious: Yes (Other)
  Sender: FDA-Public Use
  Company Number: HK-002147023-NVSC2023HK011852

PATIENT

DRUGS (4)
  1. DOCETAXEL [Suspect]
     Active Substance: DOCETAXEL
     Indication: Oesophageal squamous cell carcinoma
     Dosage: 75 MG/M2, CYCLIC (ON DAY 1, TOTAL 3 CYCLES, EVERY 3 WEEKLY)
     Route: 042
  2. FLUOROURACIL [Suspect]
     Active Substance: FLUOROURACIL
     Indication: Oesophageal squamous cell carcinoma
     Dosage: 750 MG/M2, CYCLIC (ON DAYS 1-5, TOTAL 3 CYCLES, EVERY 3 WEEKLY)(CONTINUOUS INFUSION)S INFUSION)
     Route: 065
  3. CISPLATIN [Suspect]
     Active Substance: CISPLATIN
     Indication: Oesophageal squamous cell carcinoma
     Dosage: 75 MG/M2, CYCLIC (ON DAY 1, TOTAL 3 CYCLES, EVERY 3 WEEKLY)
     Route: 065
  4. CIPROFLOXACIN [Concomitant]
     Active Substance: CIPROFLOXACIN
     Indication: Prophylaxis
     Dosage: UNK (ON DAYS 5-15)
     Route: 065

REACTIONS (3)
  - Oesophageal squamous cell carcinoma [Unknown]
  - Malignant neoplasm progression [Unknown]
  - Product use in unapproved indication [Unknown]
